FAERS Safety Report 20008135 (Version 2)
Quarter: 2022Q1

REPORT INFORMATION
  Report Type: Spontaneous
  Country: US (occurrence: US)
  Receive Date: 20211029
  Receipt Date: 20220117
  Transmission Date: 20220423
  Serious: No
  Sender: FDA-Public Use
  Company Number: US-SA-SAC20211025000179

PATIENT
  Age: 66 Year
  Sex: Male

DRUGS (39)
  1. DUPIXENT [Suspect]
     Active Substance: DUPILUMAB
     Indication: Dermatitis atopic
     Dosage: 300MG/2ML, 300MG, QOW
     Route: 058
     Dates: start: 20210303
  2. ACTOS [Concomitant]
     Active Substance: PIOGLITAZONE HYDROCHLORIDE
  3. CEFIXIME [Concomitant]
     Active Substance: CEFIXIME
  4. EUCRISA [Concomitant]
     Active Substance: CRISABOROLE
  5. METFORMIN [Concomitant]
     Active Substance: METFORMIN HYDROCHLORIDE
  6. PREDNISONE [Concomitant]
     Active Substance: PREDNISONE
  7. POTASSIUM GLUCONATE [Concomitant]
     Active Substance: POTASSIUM GLUCONATE
  8. .ALPHA.-TOCOPHEROL [Concomitant]
     Active Substance: .ALPHA.-TOCOPHEROL
  9. LUTEIN [Concomitant]
     Active Substance: LUTEIN
  10. ZINC GLUCONATE [Concomitant]
     Active Substance: ZINC GLUCONATE
  11. TEMOVATE [Concomitant]
     Active Substance: CLOBETASOL PROPIONATE
  12. JARDIANCE [Concomitant]
     Active Substance: EMPAGLIFLOZIN
  13. MICARDIS [Concomitant]
     Active Substance: TELMISARTAN
  14. OS-CAL ULTRA [CALCIUM] [Concomitant]
  15. MINOCYCLINE [Concomitant]
     Active Substance: MINOCYCLINE HYDROCHLORIDE
  16. CLOBETASOL [Concomitant]
     Active Substance: CLOBETASOL
  17. CLINDAMYCIN [Concomitant]
     Active Substance: CLINDAMYCIN
  18. INSULIN LISPRO [Concomitant]
     Active Substance: INSULIN LISPRO
  19. FARXIGA [Concomitant]
     Active Substance: DAPAGLIFLOZIN PROPANEDIOL
  20. CARVEDILOL [Concomitant]
     Active Substance: CARVEDILOL
  21. TOUJEO [Concomitant]
     Active Substance: INSULIN GLARGINE
  22. ATORVASTATIN [Concomitant]
     Active Substance: ATORVASTATIN
  23. HYDROCORTISONE ACETATE [Concomitant]
     Active Substance: HYDROCORTISONE ACETATE
  24. LOTRIMIN [Concomitant]
     Active Substance: CLOTRIMAZOLE
  25. GLUCOSAMINE/CHONDROITIN [CHONDROITIN SULFATE;GLUCOSAMINE] [Concomitant]
  26. HERBALS\TURMERIC [Concomitant]
     Active Substance: HERBALS\TURMERIC
  27. VITAMIN D3 [Concomitant]
     Active Substance: CHOLECALCIFEROL
  28. PENLAC [Concomitant]
     Active Substance: CICLOPIROX
  29. RED YEAST PLUS [Concomitant]
  30. TRIAMCINOLONE [Concomitant]
     Active Substance: TRIAMCINOLONE
  31. CLINDAMYCIN PHOSPHATE [Concomitant]
     Active Substance: CLINDAMYCIN PHOSPHATE
     Dosage: UNK
  32. FLEXERIN [Concomitant]
     Dosage: 10 MG
  33. MINOCYCLINE HYDROCHLORIDE [Concomitant]
     Active Substance: MINOCYCLINE HYDROCHLORIDE
     Dosage: UNK
  34. POTASSIUM [Concomitant]
     Active Substance: POTASSIUM
     Dosage: 550 MG
  35. TRIAMCINOLONE ACETONIDE [Concomitant]
     Active Substance: TRIAMCINOLONE ACETONIDE
     Dosage: UNK
  36. VITAMIN E [Concomitant]
     Active Substance: .ALPHA.-TOCOPHEROL
     Dosage: UNK
  37. ZINC [Concomitant]
     Active Substance: ZINC
     Dosage: UNK
  38. SODIUM GLUCONATE [Concomitant]
     Active Substance: SODIUM GLUCONATE
     Dosage: UNK
  39. HERBALS\TURMERIC [Concomitant]
     Active Substance: HERBALS\TURMERIC
     Dosage: 500 MG

REACTIONS (1)
  - Dermatitis atopic [Unknown]

NARRATIVE: CASE EVENT DATE: 20210101
